FAERS Safety Report 25523808 (Version 2)
Quarter: 2025Q3

REPORT INFORMATION
  Report Type: Report from Study
  Country: US (occurrence: US)
  Receive Date: 20250707
  Receipt Date: 20250730
  Transmission Date: 20251020
  Serious: Yes (Other)
  Sender: ALEXION PHARMACEUTICALS
  Company Number: US-AstraZeneca-CH-00902303A

PATIENT
  Sex: Male
  Weight: 131.07 kg

DRUGS (1)
  1. ULTOMIRIS [Suspect]
     Active Substance: RAVULIZUMAB-CWVZ
     Route: 065

REACTIONS (7)
  - Diabetes mellitus [Unknown]
  - Weight decreased [Unknown]
  - Obesity [Unknown]
  - Lymphoedema [Unknown]
  - Swelling [Unknown]
  - Limb injury [Unknown]
  - Blood cholesterol increased [Unknown]
